FAERS Safety Report 21610773 (Version 3)
Quarter: 2023Q1

REPORT INFORMATION
  Report Type: Report from Study
  Country: CN (occurrence: None)
  Receive Date: 20221117
  Receipt Date: 20230324
  Transmission Date: 20230418
  Serious: Yes (Death, Hospitalization)
  Sender: FDA-Public Use
  Company Number: CN-ROCHE-3219234

PATIENT
  Age: 68 Year
  Sex: Female
  Weight: 52.5 kg

DRUGS (3)
  1. ATEZOLIZUMAB [Suspect]
     Active Substance: ATEZOLIZUMAB
     Indication: Hepatocellular carcinoma
     Dosage: ON 20/OCT/2022, RECEIVED MOST RECENT DOSE OF ATEZOLIZUMAB BEFORE EVENT ONSET.
     Route: 041
     Dates: start: 20220707
  2. BEVACIZUMAB [Suspect]
     Active Substance: BEVACIZUMAB
     Indication: Hepatocellular carcinoma
     Dosage: ON 20/OCT/2022, RECEIVED MOST RECENT DOSE OF BEVACIZUMAB BEFORE EVENT ONSET.
     Route: 042
     Dates: start: 20220707
  3. EPIRUBICIN [Suspect]
     Active Substance: EPIRUBICIN
     Indication: Hepatocellular carcinoma
     Route: 065

REACTIONS (2)
  - Death [Fatal]
  - Hepatic encephalopathy [Not Recovered/Not Resolved]

NARRATIVE: CASE EVENT DATE: 20221113
